FAERS Safety Report 13124705 (Version 2)
Quarter: 2017Q1

REPORT INFORMATION
  Report Type: Report from Study
  Country: US (occurrence: US)
  Receive Date: 20170118
  Receipt Date: 20170217
  Transmission Date: 20170428
  Serious: No
  Sender: FDA-Public Use
  Company Number: US-AMGEN-USASL2017006373

PATIENT
  Age: 60 Year
  Sex: Female

DRUGS (2)
  1. ENBREL [Suspect]
     Active Substance: ETANERCEPT
     Dosage: UNK
     Route: 065
  2. ENBREL [Suspect]
     Active Substance: ETANERCEPT
     Indication: RHEUMATOID ARTHRITIS
     Dosage: 50 MG, ONCE WEEKLY
     Route: 065

REACTIONS (8)
  - Pain in extremity [Unknown]
  - Peripheral swelling [Unknown]
  - Musculoskeletal disorder [Unknown]
  - Erythema [Unknown]
  - Burning sensation [Unknown]
  - Diarrhoea [Unknown]
  - Ear infection [Unknown]
  - Sinusitis [Unknown]

NARRATIVE: CASE EVENT DATE: 201702
